FAERS Safety Report 15900447 (Version 2)
Quarter: 2020Q2

REPORT INFORMATION
  Report Type: Spontaneous
  Country: US (occurrence: US)
  Receive Date: 20190201
  Receipt Date: 20200609
  Transmission Date: 20200713
  Serious: Yes (Death, Hospitalization, Other)
  Sender: FDA-Public Use
  Company Number: US-009507513-1901USA012268

PATIENT
  Sex: Female
  Weight: 73.92 kg

DRUGS (4)
  1. VICTOZA [Suspect]
     Active Substance: LIRAGLUTIDE
     Indication: TYPE 2 DIABETES MELLITUS
     Dosage: UNK
     Dates: start: 201404, end: 201704
  2. BYETTA [Suspect]
     Active Substance: EXENATIDE
     Indication: TYPE 2 DIABETES MELLITUS
     Dosage: UNK
     Route: 065
     Dates: start: 201404, end: 201704
  3. JANUVIA [Suspect]
     Active Substance: SITAGLIPTIN PHOSPHATE
     Indication: TYPE 2 DIABETES MELLITUS
     Dosage: UNK
     Route: 048
     Dates: start: 201404, end: 201704
  4. JANUMET [Suspect]
     Active Substance: METFORMIN HYDROCHLORIDE\SITAGLIPTIN PHOSPHATE
     Indication: TYPE 2 DIABETES MELLITUS
     Dosage: UNK
     Route: 048
     Dates: start: 201404, end: 201704

REACTIONS (26)
  - Cholecystitis [Not Recovered/Not Resolved]
  - Mental status changes [Unknown]
  - Feeling abnormal [Unknown]
  - Peripheral swelling [Unknown]
  - Nephrolithiasis [Unknown]
  - Immature granulocyte percentage increased [Unknown]
  - Portal hypertension [Unknown]
  - Blood albumin decreased [Unknown]
  - Claustrophobia [Unknown]
  - Aspartate aminotransferase increased [Unknown]
  - Hepatic cirrhosis [Unknown]
  - Blood alkaline phosphatase increased [Unknown]
  - Decreased activity [Unknown]
  - Poor quality sleep [Unknown]
  - Ascites [Unknown]
  - Lymphocyte count decreased [Unknown]
  - Red cell distribution width increased [Unknown]
  - Platelet count decreased [Unknown]
  - Cough [Recovering/Resolving]
  - Cholelithiasis [Not Recovered/Not Resolved]
  - Immature granulocyte count increased [Unknown]
  - Asthenia [Unknown]
  - Adenocarcinoma pancreas [Fatal]
  - Cellulitis [Not Recovered/Not Resolved]
  - Eosinophil count decreased [Unknown]
  - Nodal arrhythmia [Not Recovered/Not Resolved]

NARRATIVE: CASE EVENT DATE: 2016
